FAERS Safety Report 13883757 (Version 2)
Quarter: 2017Q3

REPORT INFORMATION
  Report Type: Spontaneous
  Country: US (occurrence: US)
  Receive Date: 20170819
  Receipt Date: 20170830
  Transmission Date: 20171127
  Serious: No
  Sender: FDA-Public Use
  Company Number: US-CELGENEUS-USA-20170804410

PATIENT
  Age: 83 Year
  Sex: Female

DRUGS (1)
  1. OTEZLA [Suspect]
     Active Substance: APREMILAST
     Indication: PSORIASIS
     Dosage: 60 MILLIGRAM
     Route: 048
     Dates: start: 20170808, end: 20170810

REACTIONS (6)
  - Abdominal pain upper [Unknown]
  - Weight decreased [Recovered/Resolved]
  - Adverse drug reaction [Unknown]
  - Muscle spasms [Unknown]
  - Bowel movement irregularity [Unknown]
  - Diarrhoea [Recovered/Resolved]

NARRATIVE: CASE EVENT DATE: 201708
